FAERS Safety Report 23189232 (Version 1)
Quarter: 2023Q4

REPORT INFORMATION
  Report Type: Spontaneous
  Country: DE (occurrence: DE)
  Receive Date: 20231115
  Receipt Date: 20231115
  Transmission Date: 20240110
  Serious: Yes (Hospitalization)
  Sender: FDA-Public Use
  Company Number: None

PATIENT
  Age: 52 Year
  Sex: Female
  Weight: 56 kg

DRUGS (2)
  1. COPAXONE [Suspect]
     Active Substance: GLATIRAMER ACETATE
     Indication: Multiple sclerosis
     Dosage: 40 MG
     Route: 065
     Dates: start: 20231003, end: 20231010
  2. PROPIONIC ACID [Concomitant]
     Active Substance: PROPIONIC ACID
     Indication: Product used for unknown indication
     Dosage: 2 DOSAGE FORMS DAILY; 1-0-1

REACTIONS (14)
  - Drug hypersensitivity [Recovered/Resolved]
  - Gastrointestinal sounds abnormal [Unknown]
  - Injection site erythema [Unknown]
  - Febrile infection [Recovered/Resolved]
  - Dyspnoea [Recovering/Resolving]
  - Body temperature increased [Recovered/Resolved]
  - Chills [Recovered/Resolved]
  - Tongue disorder [Unknown]
  - Muscle spasms [Recovered/Resolved]
  - Muscle contracture [Recovering/Resolving]
  - Injection site pain [Unknown]
  - Injection site swelling [Unknown]
  - Pyrexia [Recovered/Resolved]
  - Injection site pruritus [Unknown]

NARRATIVE: CASE EVENT DATE: 20231010
